FAERS Safety Report 8218102-0 (Version None)
Quarter: 2012Q1

REPORT INFORMATION
  Report Type: 
  Country: None (occurrence: None)
  Receive Date: 20120319
  Receipt Date: 20120311
  Transmission Date: 20120608
  Serious: Yes (Hospitalization, Other)
  Sender: FDA-Public Use
  Company Number: CZ-UCBSA-051176

PATIENT
  Age: 75 Year
  Sex: Male
  Weight: 68 kg

DRUGS (6)
  1. CORDURA XL [Concomitant]
     Indication: BENIGN PROSTATIC HYPERPLASIA
  2. NEUPRO [Suspect]
     Route: 062
     Dates: start: 20100929, end: 20101005
  3. NEUPRO [Suspect]
     Indication: PARKINSON'S DISEASE
     Route: 062
     Dates: start: 20101006
  4. NEUPRO [Suspect]
     Route: 062
     Dates: start: 20100922, end: 20100928
  5. STALEVO 100 [Concomitant]
     Indication: PARKINSON'S DISEASE
     Dates: start: 20090101
  6. QUAMATEL [Concomitant]
     Indication: DYSPEPSIA

REACTIONS (1)
  - MITRAL VALVE INCOMPETENCE [None]
